FAERS Safety Report 8164365-X (Version None)
Quarter: 2012Q1

REPORT INFORMATION
  Report Type: 
  Country: None (occurrence: None)
  Receive Date: 20120224
  Receipt Date: 20110316
  Transmission Date: 20120608
  Serious: Yes (Life-Threatening, Hospitalization)
  Sender: FDA-Public Use
  Company Number: PHHY2011FR23608

PATIENT
  Sex: Male
  Weight: 76.5 kg

DRUGS (18)
  1. DOCETAXEL [Suspect]
     Indication: PROSTATE CANCER
     Dosage: 140 MG, DAILY
     Dates: start: 20110216, end: 20110309
  2. FUROSEMIDE [Concomitant]
     Indication: HYPERTENSION
     Dosage: 40 MG, QD
     Route: 048
  3. ZOLADEX [Concomitant]
     Indication: RENAL OSTEODYSTROPHY
     Dosage: 0.12 MG, QMO
     Route: 058
     Dates: start: 20110126
  4. INNOHEP [Concomitant]
     Indication: THROMBOSIS
     Dosage: 0.7 ML, QD
     Route: 058
     Dates: start: 20110126
  5. ZOLADEX [Concomitant]
     Indication: PROSTATE CANCER METASTATIC
  6. COLCHICINE [Concomitant]
     Indication: GOUT
     Dosage: 1 MG, QD
     Route: 048
     Dates: start: 20110307, end: 20110313
  7. LENALIDOMIDE [Suspect]
     Indication: PROSTATE CANCER
     Dosage: 25 MG, DAILY
     Route: 048
     Dates: start: 20110216, end: 20110309
  8. UN-ALFA [Concomitant]
     Indication: RENAL OSTEODYSTROPHY
  9. ATORVASTATIN [Concomitant]
     Indication: DIABETES MELLITUS
     Dosage: 40 MG, QD
     Route: 048
     Dates: end: 20110307
  10. ATENOLOL [Concomitant]
     Indication: ARRHYTHMIA
     Dosage: 50 MG, QD
     Route: 048
  11. NEXIUM [Concomitant]
     Indication: GASTROOESOPHAGEAL REFLUX DISEASE
     Dosage: 40 MG, QD
     Route: 048
  12. ZOMETA [Suspect]
     Indication: BONE LESION
     Dosage: 3.3 MG, QMO
     Route: 058
     Dates: start: 20101101
  13. PREDNISONE TAB [Suspect]
     Indication: PROSTATE CANCER
     Dosage: 10 MG, DAILY
     Dates: start: 20110216, end: 20110309
  14. AMLODIPINE [Concomitant]
     Indication: HYPERTENSION
     Dosage: 5 MG, QD
     Route: 048
     Dates: end: 20110307
  15. FOSINOPRIL SODIUM [Concomitant]
     Indication: HYPERTENSION
     Dosage: 10 MG, QD
     Route: 048
     Dates: end: 20110307
  16. LANTUS [Concomitant]
     Indication: DIABETES MELLITUS
     Dosage: 18 IU, QD
     Route: 058
     Dates: start: 20060101
  17. ALLOPURINOL [Concomitant]
     Indication: GOUT
     Dosage: 100 MG, QD
     Route: 048
  18. UN-ALFA [Concomitant]
     Indication: PROSTATE CANCER
     Dosage: 0.107 UG, 3 UNIT DOSES PER WEEK
     Route: 048
     Dates: start: 20060131, end: 20110307

REACTIONS (5)
  - HYPOCALCAEMIA [None]
  - URINARY TRACT INFECTION [None]
  - CONVULSION [None]
  - METABOLIC ACIDOSIS [None]
  - KLEBSIELLA TEST POSITIVE [None]
